FAERS Safety Report 25435111 (Version 1)
Quarter: 2025Q2

REPORT INFORMATION
  Report Type: Spontaneous
  Country: US (occurrence: US)
  Receive Date: 20250613
  Receipt Date: 20250613
  Transmission Date: 20250716
  Serious: Yes (Other)
  Sender: PHARMING GROUP
  Company Number: US-PHARMING-PHAUS2025000525

PATIENT

DRUGS (4)
  1. RUCONEST [Suspect]
     Active Substance: CONESTAT ALFA
     Indication: Hereditary angioedema
     Route: 042
     Dates: start: 201806
  2. RUCONEST [Suspect]
     Active Substance: CONESTAT ALFA
     Route: 042
     Dates: start: 201806
  3. ORENCIA [Concomitant]
     Active Substance: ABATACEPT
     Indication: Rheumatoid arthritis
  4. ORENCIA [Concomitant]
     Active Substance: ABATACEPT
     Indication: Systemic lupus erythematosus

REACTIONS (1)
  - Rheumatoid arthritis [Unknown]
